FAERS Safety Report 5745782-1 (Version None)
Quarter: 2008Q2

REPORT INFORMATION
  Report Type: 
  Country: None (occurrence: None)
  Receive Date: 20080521
  Receipt Date: 20080515
  Transmission Date: 20081010
  Serious: Yes (Other)
  Sender: FDA-Public Use
  Company Number: JP-PFIZER INC-2008042176

PATIENT
  Age: 65 Year
  Sex: Male

DRUGS (3)
  1. NORVASC [Suspect]
     Route: 048
  2. CARDENALIN [Suspect]
     Route: 048
  3. ALLOPURINOL [Concomitant]
     Route: 048

REACTIONS (3)
  - BLOOD URINE PRESENT [None]
  - CONDITION AGGRAVATED [None]
  - PROTEINURIA [None]
